FAERS Safety Report 17779281 (Version 2)
Quarter: 2020Q2

REPORT INFORMATION
  Report Type: Spontaneous
  Country: US (occurrence: US)
  Receive Date: 20200513
  Receipt Date: 20200529
  Transmission Date: 20200714
  Serious: Yes (Hospitalization, Other)
  Sender: FDA-Public Use
  Company Number: US-TEVA-2020-US-1234119

PATIENT
  Age: 48 Year
  Sex: Female

DRUGS (11)
  1. LOPERAMIDE [Suspect]
     Active Substance: LOPERAMIDE
     Indication: DIARRHOEA
     Route: 065
  2. CYTARABINE. [Suspect]
     Active Substance: CYTARABINE
     Route: 065
     Dates: start: 201811
  3. BECLOMETHASONE [Concomitant]
     Active Substance: BECLOMETHASONE
     Indication: DRUG THERAPY
     Dosage: FORMULATION: OIL
     Route: 065
  4. ETOPOSIDE. [Suspect]
     Active Substance: ETOPOSIDE
     Route: 065
     Dates: start: 201811
  5. CARMUSTINE. [Suspect]
     Active Substance: CARMUSTINE
     Route: 065
     Dates: start: 201811
  6. ANTITHYMOCYTE GLOBULIN [Suspect]
     Active Substance: THYMOCYTE IMMUNE GLOBULIN NOS
     Route: 065
     Dates: start: 201811
  7. CIDOFOVIR. [Suspect]
     Active Substance: CIDOFOVIR
     Indication: ADENOVIRUS INFECTION
     Route: 065
  8. RIBAVIRIN. [Concomitant]
     Active Substance: RIBAVIRIN
     Indication: RESPIRATORY SYNCYTIAL VIRUS INFECTION
     Route: 048
  9. MELPHALAN. [Suspect]
     Active Substance: MELPHALAN
     Route: 065
     Dates: start: 201811
  10. PHENAZOPYRIDINE. [Concomitant]
     Active Substance: PHENAZOPYRIDINE
     Indication: BK VIRUS INFECTION
     Route: 065
  11. BUDESONIDE. [Concomitant]
     Active Substance: BUDESONIDE
     Indication: DRUG THERAPY
     Dosage: FORMULATION: OIL
     Route: 065

REACTIONS (11)
  - Anaemia [Unknown]
  - Vomiting [Recovered/Resolved]
  - Respiratory syncytial virus infection [Unknown]
  - Lymphopenia [Unknown]
  - Adenovirus infection [Recovered/Resolved]
  - Nausea [Recovered/Resolved]
  - Thrombocytopenia [Unknown]
  - Gastroenteritis adenovirus [Recovered/Resolved]
  - Drug ineffective [Unknown]
  - BK virus infection [Unknown]
  - Cystitis haemorrhagic [Unknown]
